FAERS Safety Report 14870726 (Version 1)
Quarter: 2018Q2

REPORT INFORMATION
  Report Type: Spontaneous
  Country: US (occurrence: US)
  Receive Date: 20180509
  Receipt Date: 20180509
  Transmission Date: 20180711
  Serious: Yes (Hospitalization, Other)
  Sender: FDA-Public Use
  Company Number: US-IMPAX LABORATORIES, INC-2018-IPXL-01469

PATIENT
  Age: 57 Year
  Sex: Male

DRUGS (1)
  1. ADRENACLICK [Suspect]
     Active Substance: EPINEPHRINE
     Indication: CARDIAC ARREST
     Dosage: UNK, SEVERAL ROUNDS
     Route: 065

REACTIONS (7)
  - Insulin resistance [Unknown]
  - Autonomic nervous system imbalance [Recovered/Resolved]
  - Hypercatabolism [Recovered/Resolved]
  - Unresponsive to stimuli [Unknown]
  - Hypernatraemia [Recovered/Resolved]
  - Brain injury [Unknown]
  - Polyuria [Recovered/Resolved]
